FAERS Safety Report 13017615 (Version 11)
Quarter: 2023Q2

REPORT INFORMATION
  Report Type: Spontaneous
  Country: US (occurrence: US)
  Receive Date: 20161212
  Receipt Date: 20230410
  Transmission Date: 20230722
  Serious: Yes (Other)
  Sender: FDA-Public Use
  Company Number: US-PFIZER INC-2016574841

PATIENT
  Age: 69 Year
  Sex: Female
  Weight: 90 kg

DRUGS (2)
  1. XELJANZ [Suspect]
     Active Substance: TOFACITINIB CITRATE
     Dosage: 5 MG
     Dates: start: 201608
  2. XELJANZ [Suspect]
     Active Substance: TOFACITINIB CITRATE
     Dosage: 10 MG, DAILY

REACTIONS (13)
  - Knee arthroplasty [Unknown]
  - Eye operation [Unknown]
  - Off label use [Unknown]
  - Dry eye [Not Recovered/Not Resolved]
  - Headache [Unknown]
  - Illness [Unknown]
  - Spinal stenosis [Unknown]
  - Immune system disorder [Unknown]
  - Reading disorder [Unknown]
  - Sinusitis [Unknown]
  - Pain [Unknown]
  - Sensitivity to weather change [Unknown]
  - Arthritis [Unknown]

NARRATIVE: CASE EVENT DATE: 20160801
